FAERS Safety Report 6618458-6 (Version None)
Quarter: 2010Q1

REPORT INFORMATION
  Report Type: 
  Country: None (occurrence: None)
  Receive Date: 20100308
  Receipt Date: 20100303
  Transmission Date: 20100710
  Serious: Yes (Hospitalization)
  Sender: FDA-Public Use
  Company Number: US-GILEAD-2010-0027466

PATIENT
  Sex: Female
  Weight: 90.8 kg

DRUGS (12)
  1. LETAIRIS [Suspect]
     Indication: PULMONARY ARTERIAL HYPERTENSION
     Route: 048
     Dates: start: 20090804
  2. ADCIRCA [Concomitant]
  3. SPIRONOLACTONE [Concomitant]
  4. FUROSEMIDE [Concomitant]
  5. HYDROXYCHLOROQUONE [Concomitant]
  6. TRAMADOL HCL [Concomitant]
  7. POT CL [Concomitant]
  8. SOD CL [Concomitant]
  9. PRILOSEC [Concomitant]
  10. OXYGEN [Concomitant]
  11. AMBIEN [Concomitant]
  12. TYLENOL PM [Concomitant]

REACTIONS (1)
  - PULMONARY ARTERIAL HYPERTENSION [None]
